FAERS Safety Report 12236855 (Version 3)
Quarter: 2016Q2

REPORT INFORMATION
  Report Type: Spontaneous
  Country: US (occurrence: US)
  Receive Date: 20160405
  Receipt Date: 20160408
  Transmission Date: 20160815
  Serious: Yes (Other)
  Sender: FDA-Public Use
  Company Number: US-SUN PHARMACEUTICAL INDUSTRIES LTD-2015US-114386

PATIENT
  Age: 66 Year
  Sex: Male

DRUGS (9)
  1. SULFAMETHOXAZOLE/TRIMETHOPRIM [Suspect]
     Active Substance: SULFAMETHOXAZOLE\TRIMETHOPRIM
     Indication: URINARY TRACT INFECTION
     Dosage: BID
     Route: 065
     Dates: start: 201304
  2. VINCRISTINE [Suspect]
     Active Substance: VINCRISTINE
     Indication: B-CELL LYMPHOMA
     Dosage: 4 CYCLES
     Route: 065
     Dates: start: 201302
  3. RITUXIMAB [Suspect]
     Active Substance: RITUXIMAB
     Indication: B-CELL LYMPHOMA
     Dosage: 4 CYCLES
     Route: 065
     Dates: start: 201302
  4. CYCLOPHOSPHAMIDE. [Suspect]
     Active Substance: CYCLOPHOSPHAMIDE
     Indication: B-CELL LYMPHOMA
     Dosage: 4 CYCLES
     Route: 065
     Dates: start: 201302
  5. SULPHAMETHOXAZOLE/TRIMETHOPRIM [Suspect]
     Active Substance: SULFAMETHOXAZOLE\TRIMETHOPRIM
     Indication: PROPHYLAXIS
     Dosage: 1.9 MG, DAILY
  6. ACICLOVIR [Suspect]
     Active Substance: ACYCLOVIR
     Indication: B-CELL LYMPHOMA
     Dosage: UNK
     Route: 065
  7. PREDNISOLONE. [Suspect]
     Active Substance: PREDNISOLONE
     Indication: B-CELL LYMPHOMA
     Dosage: 4 CYCLES
     Route: 065
     Dates: start: 201302
  8. HYDROXYDAUNORUBICIN [Suspect]
     Active Substance: DOXORUBICIN
     Indication: B-CELL LYMPHOMA
     Dosage: 4 CYCLES
     Route: 065
     Dates: start: 201302
  9. SULPHAMETHOXAZOLE/TRIMETHOPRIM [Suspect]
     Active Substance: SULFAMETHOXAZOLE\TRIMETHOPRIM
     Indication: PNEUMOCYSTIS JIROVECII PNEUMONIA
     Dosage: 2 DF, QID (15.6 MG/KG/DAY)
     Route: 048

REACTIONS (4)
  - Asterixis [Recovered/Resolved]
  - Postural tremor [Recovered/Resolved]
  - Myoclonus [Recovered/Resolved]
  - Thrombocytopenia [Recovered/Resolved]
